FAERS Safety Report 4907482-7 (Version None)
Quarter: 2006Q1

REPORT INFORMATION
  Report Type: 
  Country: None (occurrence: None)
  Receive Date: 20060208
  Receipt Date: 20060208
  Transmission Date: 20060701
  Serious: Yes (Life-Threatening, Hospitalization, Other)
  Sender: FDA-Public Use
  Company Number: None

PATIENT
  Age: 13 Year
  Sex: Male
  Weight: 80.7403 kg

DRUGS (2)
  1. OPTIMARK [Suspect]
     Indication: TENDONITIS
     Dosage: ONCE INTRA-ARTICULAR
     Route: 014
     Dates: start: 20050929, end: 20050929
  2. OMNIPAQUE 140 [Suspect]

REACTIONS (7)
  - ARTHRALGIA [None]
  - ARTHRITIS INFECTIVE [None]
  - CENTRAL LINE INFECTION [None]
  - SEPSIS [None]
  - STAPHYLOCOCCAL INFECTION [None]
  - TENDONITIS [None]
  - THROMBOSIS [None]
